FAERS Safety Report 5381025-9 (Version None)
Quarter: 2007Q2

REPORT INFORMATION
  Report Type: 
  Country: None (occurrence: None)
  Receive Date: 20070629
  Receipt Date: 20061116
  Transmission Date: 20071010
  Serious: Yes (Other)
  Sender: FDA-Public Use
  Company Number: US200611003442

PATIENT
  Age: 40 Year
  Sex: Male

DRUGS (6)
  1. HUMALOG [Suspect]
     Dates: start: 20060501
  2. HUMULIN N [Suspect]
     Dates: start: 19960101, end: 20060501
  3. HUMULIN R [Suspect]
     Dates: start: 19860101, end: 20060501
  4. ILETIN [Suspect]
     Dates: start: 19760101, end: 19860101
  5. ILETIN [Suspect]
     Dates: start: 19760101, end: 19860101
  6. HUMALGO PEN (HUMALOG PEN) PEN, DISPOSABLE [Concomitant]

REACTIONS (3)
  - BLINDNESS [None]
  - DIABETIC RETINOPATHY [None]
  - NEOVASCULARISATION [None]
